FAERS Safety Report 21838379 (Version 1)
Quarter: 2023Q1

REPORT INFORMATION
  Report Type: Spontaneous
  Country: US (occurrence: None)
  Receive Date: 20230109
  Receipt Date: 20230109
  Transmission Date: 20230418
  Serious: Yes (Death)
  Sender: FDA-Public Use
  Company Number: 2023A004870

PATIENT
  Sex: Male

DRUGS (1)
  1. SYMBICORT [Suspect]
     Active Substance: BUDESONIDE\FORMOTEROL FUMARATE DIHYDRATE
     Indication: Chronic obstructive pulmonary disease
     Dosage: 160/4.5 UG, TWO PUFFS, TWO TIMES A DAY AS NEEDED
     Route: 055

REACTIONS (4)
  - Ulcer haemorrhage [Fatal]
  - Condition aggravated [Fatal]
  - Product prescribing issue [Unknown]
  - Product use issue [Unknown]
